FAERS Safety Report 20457941 (Version 1)
Quarter: 2022Q1

REPORT INFORMATION
  Report Type: Spontaneous
  Country: US (occurrence: US)
  Receive Date: 20220210
  Receipt Date: 20220210
  Transmission Date: 20220423
  Serious: No
  Sender: FDA-Public Use
  Company Number: US-HETERO-HET2022US00322

PATIENT

DRUGS (8)
  1. RITONAVIR [Suspect]
     Active Substance: RITONAVIR
     Indication: COVID-19
     Dosage: 3 TABLETS IN THE MORNING, 3 TABLETS AT NIGHT
     Route: 065
     Dates: start: 20220202
  2. CLINDAMYCIN HYDROCHLORIDE [Suspect]
     Active Substance: CLINDAMYCIN HYDROCHLORIDE
     Indication: Mastitis
     Dosage: 300 MG (3X/DAY)
     Route: 065
     Dates: start: 20220124, end: 20220201
  3. CLINDAMYCIN HYDROCHLORIDE [Suspect]
     Active Substance: CLINDAMYCIN HYDROCHLORIDE
     Dosage: 300 MG (2X/DAY)
     Route: 065
     Dates: start: 20220201
  4. VITAMIN D3 [Concomitant]
     Active Substance: CHOLECALCIFEROL
     Indication: COVID-19
     Dosage: UNK
     Route: 065
     Dates: start: 2020
  5. ZINC [Concomitant]
     Active Substance: ZINC
     Indication: COVID-19
     Dosage: UNK
     Route: 065
     Dates: start: 2020
  6. VITAMIN C                          /00008001/ [Concomitant]
     Indication: COVID-19
     Dosage: UNK
     Route: 065
     Dates: start: 2020
  7. SPIRONOLACTONE [Concomitant]
     Active Substance: SPIRONOLACTONE
     Indication: Blood pressure abnormal
     Dosage: UNK
     Route: 065
     Dates: start: 2020
  8. ASPIRIN [Concomitant]
     Active Substance: ASPIRIN
     Indication: Head injury
     Dosage: UNK
     Route: 065

REACTIONS (8)
  - Sensory disturbance [Unknown]
  - Eructation [Unknown]
  - Chest pain [Unknown]
  - Dyspepsia [Unknown]
  - Illness [Not Recovered/Not Resolved]
  - Nausea [Recovering/Resolving]
  - Dysgeusia [Not Recovered/Not Resolved]
  - Asthenia [Unknown]

NARRATIVE: CASE EVENT DATE: 20220202
